FAERS Safety Report 5693698-1 (Version None)
Quarter: 2008Q2

REPORT INFORMATION
  Report Type: 
  Country: None (occurrence: None)
  Receive Date: 20080403
  Receipt Date: 20080328
  Transmission Date: 20081010
  Serious: Yes (Hospitalization)
  Sender: FDA-Public Use
  Company Number: FR-AVENTIS-200811151FR

PATIENT
  Age: 48 Year
  Sex: Female

DRUGS (4)
  1. TAXOTERE [Suspect]
     Route: 042
     Dates: start: 20080301, end: 20080301
  2. ADRIAMYCIN PFS [Concomitant]
     Route: 042
     Dates: start: 20080301, end: 20080301
  3. CYCLOPHOSPHAMIDE [Concomitant]
     Route: 042
     Dates: start: 20080301, end: 20080301
  4. NEULASTA [Concomitant]

REACTIONS (4)
  - ABDOMINAL PAIN [None]
  - COLITIS [None]
  - LIVEDO RETICULARIS [None]
  - SHOCK [None]
